FAERS Safety Report 4463414-X (Version None)
Quarter: 2004Q3

REPORT INFORMATION
  Report Type: 
  Country: None (occurrence: None)
  Receive Date: 20040928
  Receipt Date: 20040915
  Transmission Date: 20050211
  Serious: Yes (Hospitalization)
  Sender: FDA-Public Use
  Company Number: HQWYE118120SEP04

PATIENT
  Sex: Female

DRUGS (6)
  1. EFFEXOR XR [Suspect]
     Indication: DEPRESSION
     Dosage: SEE IMAGE
     Route: 064
     Dates: start: 20010801
  2. EFFEXOR XR [Suspect]
     Indication: PANIC ATTACK
     Dosage: SEE IMAGE
     Route: 064
     Dates: start: 20010801
  3. TYLENOL [Concomitant]
  4. UNSPECIFIED ANTIBIOTIC (UNSPECIFIED ANTIBIOTIC) [Concomitant]
  5. AZITHROMYCIN [Concomitant]
  6. DARVOCET-N (DEXTROPROPOXYPHENE/PARACETAMOL) [Concomitant]

REACTIONS (18)
  - ABNORMAL BEHAVIOUR [None]
  - AGGRESSION [None]
  - BRADYCARDIA NEONATAL [None]
  - COMMUNICATION DISORDER [None]
  - DEVELOPMENTAL DELAY [None]
  - EXCITABILITY [None]
  - GAIT DISTURBANCE [None]
  - GASTROOESOPHAGEAL REFLUX DISEASE [None]
  - HYPOTONIA NEONATAL [None]
  - INSOMNIA [None]
  - MATERNAL DRUGS AFFECTING FOETUS [None]
  - NEONATAL DISORDER [None]
  - NEONATAL RESPIRATORY ARREST [None]
  - POOR SUCKING REFLEX [None]
  - PREMATURE BABY [None]
  - SELF MUTILATION [None]
  - SENSORY INTEGRATIVE DYSFUNCTION [None]
  - SEPSIS NEONATAL [None]
